FAERS Safety Report 5694288-7 (Version None)
Quarter: 2008Q2

REPORT INFORMATION
  Report Type: 
  Country: None (occurrence: None)
  Receive Date: 20080402
  Receipt Date: 20080321
  Transmission Date: 20081010
  Serious: Yes (Hospitalization)
  Sender: FDA-Public Use
  Company Number: MEDI-0006693

PATIENT
  Age: 4 Month
  Sex: Female
  Weight: 6 kg

DRUGS (6)
  1. SYNAGIS [Suspect]
     Dosage: 15 MG/KG, 1 IN 1 M, INTRAVENOUS (NOT OTHERWISE SPECIFIED)
     Route: 042
     Dates: start: 20070914
  2. SYNAGIS [Suspect]
     Dosage: 15 MG/KG, 1 IN 1 M, INTRAVENOUS (NOT OTHERWISE SPECIFIED)
     Route: 042
     Dates: start: 20080212
  3. THEOPHYLLINE [Concomitant]
  4. PHENOBARBITAL TAB [Concomitant]
  5. FERRIC HYDROXIDE POLYMALTOSE COMPLEX (FERRIC HYDROXIDE POLYMALTOSE COM [Concomitant]
  6. MULTIVITAMIN [Concomitant]

REACTIONS (1)
  - BRONCHIOLITIS [None]
